FAERS Safety Report 10692824 (Version 1)
Quarter: 2015Q1

REPORT INFORMATION
  Report Type: Spontaneous
  Country: US (occurrence: None)
  Receive Date: 20150105
  Receipt Date: 20150105
  Transmission Date: 20150720
  Serious: Yes (Disabling)
  Sender: FDA-Public Use
  Company Number: None

PATIENT
  Age: 60 Year
  Sex: Male
  Weight: 90.72 kg

DRUGS (1)
  1. VOLTAREN [Suspect]
     Active Substance: DICLOFENAC SODIUM
     Indication: OSTEOARTHRITIS
     Dosage: 2 GRAMS,  THREE TIMES DAILY, APPLIED TO A SURFACE USUALLY THE SKIN
     Dates: start: 20130613, end: 20140102

REACTIONS (5)
  - Skin ulcer [None]
  - Motion sickness [None]
  - Rash [None]
  - Deafness unilateral [None]
  - Dizziness [None]

NARRATIVE: CASE EVENT DATE: 20131128
